FAERS Safety Report 17262232 (Version 2)
Quarter: 2020Q1

REPORT INFORMATION
  Report Type: Spontaneous
  Country: FR (occurrence: FR)
  Receive Date: 20200113
  Receipt Date: 20200326
  Transmission Date: 20200409
  Serious: Yes (Hospitalization, Other)
  Sender: FDA-Public Use
  Company Number: FR-MYLANLABS-2019M1123075

PATIENT
  Age: 10 Year
  Sex: Male
  Weight: 26 kg

DRUGS (3)
  1. PYRAZINAMIDE. [Suspect]
     Active Substance: PYRAZINAMIDE
     Indication: TUBERCULOSIS
  2. LEVOFLOXACIN. [Suspect]
     Active Substance: LEVOFLOXACIN
     Indication: LATENT TUBERCULOSIS
     Dosage: 15 MILLIGRAM/KILOGRAM, QD (15 MG/KG/DAY)
     Route: 048
  3. PYRAZINAMIDE. [Suspect]
     Active Substance: PYRAZINAMIDE
     Indication: LATENT TUBERCULOSIS
     Dosage: 25 MILLIGRAM/KILOGRAM, QD (25 MG/KG/DAY )
     Route: 048

REACTIONS (6)
  - Cholestasis [Recovered/Resolved]
  - Coagulopathy [Recovered/Resolved]
  - Cell death [Recovered/Resolved]
  - Toxicity to various agents [Recovered/Resolved]
  - Encephalopathy [Recovered/Resolved]
  - Acute hepatic failure [Recovered/Resolved]
